FAERS Safety Report 5497857-2 (Version None)
Quarter: 2007Q4

REPORT INFORMATION
  Report Type: 
  Country: None (occurrence: None)
  Receive Date: 20071023
  Receipt Date: 20071008
  Transmission Date: 20080405
  Serious: Yes (Other)
  Sender: FDA-Public Use
  Company Number: 100#03#2007-04024

PATIENT
  Age: 47 Year
  Sex: Female

DRUGS (4)
  1. CARBOPLATIN [Suspect]
     Indication: OVARIAN CANCER
     Dosage: 738MG INTRAVENOUS (NOT OTHERWISE SPECIFIED)
     Route: 042
     Dates: start: 20070918, end: 20070918
  2. DECITABINE (DECITABINE) (DECITABINE) [Concomitant]
  3. DEXAMETHASONE [Concomitant]
  4. GRANISETRON (GRANISETRON) (GRANISETRON) [Concomitant]

REACTIONS (4)
  - CHEST DISCOMFORT [None]
  - INFUSION RELATED REACTION [None]
  - PRURITUS [None]
  - RASH MACULAR [None]
